FAERS Safety Report 5113335-4 (Version None)
Quarter: 2006Q3

REPORT INFORMATION
  Report Type: 
  Country: None (occurrence: None)
  Receive Date: 20060920
  Receipt Date: 20060907
  Transmission Date: 20061208
  Serious: Yes (Other)
  Sender: FDA-Public Use
  Company Number: 2006110762

PATIENT
  Age: 72 Year
  Sex: Female
  Weight: 63.5036 kg

DRUGS (6)
  1. NARDIL [Suspect]
     Indication: DEPRESSION
     Dosage: 45 MG (15 MG, 2 IN 1 D), ORAL
     Route: 048
  2. TOPROL-XL [Concomitant]
  3. SYNTHROID [Concomitant]
  4. PREDNISONE TAB [Concomitant]
  5. FOLIC ACID [Concomitant]
  6. VITAMINS (VITAMINS) [Concomitant]

REACTIONS (2)
  - DERMATILLOMANIA [None]
  - RASH [None]
